FAERS Safety Report 9436131 (Version 1)
Quarter: 2013Q3

REPORT INFORMATION
  Report Type: Spontaneous
  Country: None (occurrence: DE)
  Receive Date: 20130801
  Receipt Date: 20130801
  Transmission Date: 20140515
  Serious: Yes (Other)
  Sender: FDA-Public Use
  Company Number: DE-ALLERGAN-1311510US

PATIENT
  Age: 75 Year
  Sex: 0

DRUGS (1)
  1. TROSPIUM CHLORIDE UNK [Suspect]
     Indication: URGE INCONTINENCE
     Dosage: 1 DF, QD
     Route: 048
     Dates: start: 20130523, end: 20130604

REACTIONS (2)
  - Visual impairment [Recovered/Resolved]
  - Headache [Recovered/Resolved]
